FAERS Safety Report 8462406-3 (Version None)
Quarter: 2012Q2

REPORT INFORMATION
  Report Type: 
  Country: None (occurrence: None)
  Receive Date: 20120625
  Receipt Date: 20120615
  Transmission Date: 20120825
  Serious: Yes (Other)
  Sender: FDA-Public Use
  Company Number: US-ASTRAZENECA-2012SE14367

PATIENT
  Age: 66 Year
  Sex: Female

DRUGS (3)
  1. CRESTOR [Suspect]
     Route: 048
  2. VIGAMOX [Concomitant]
     Indication: OPHTHALMOLOGIC TREATMENT
     Dosage: Q7D
     Route: 047
  3. PRED FORTE [Concomitant]
     Indication: OPHTHALMOLOGIC TREATMENT
     Dosage: Q7D
     Route: 047

REACTIONS (1)
  - RETINAL DETACHMENT [None]
